FAERS Safety Report 6367609-X (Version None)
Quarter: 2009Q3

REPORT INFORMATION
  Report Type: 
  Country: None (occurrence: None)
  Receive Date: 20090909
  Receipt Date: 20090906
  Transmission Date: 20100115
  Serious: Yes (Other)
  Sender: FDA-Public Use
  Company Number: E-09-269

PATIENT
  Age: 80 Year
  Sex: Female

DRUGS (5)
  1. SPIRONOLACTONE [Suspect]
     Indication: HYPERTENSION
     Dosage: ONE P.O. B.I.D.
     Dates: start: 20090628, end: 20090809
  2. SPIRONOLACTONE [Suspect]
     Indication: OEDEMA PERIPHERAL
     Dosage: ONE P.O. B.I.D.
     Dates: start: 20090628, end: 20090809
  3. AVAPRO [Concomitant]
  4. AMLODIPINE [Concomitant]
  5. FOSAMAX [Concomitant]

REACTIONS (2)
  - ABDOMINAL DISCOMFORT [None]
  - COUGH [None]
